FAERS Safety Report 8880180 (Version 2)
Quarter: 2013Q1

REPORT INFORMATION
  Report Type: Spontaneous
  Country: MX (occurrence: MX)
  Receive Date: 20121101
  Receipt Date: 20130111
  Transmission Date: 20140127
  Serious: Yes (Other)
  Sender: FDA-Public Use
  Company Number: MX-BAYER-2012-111155

PATIENT
  Sex: Female

DRUGS (1)
  1. CANESTEN V OVULOS [Suspect]
     Indication: INFECTION
     Dosage: 200 MG, QD
     Route: 067

REACTIONS (2)
  - Vaginal haemorrhage [Unknown]
  - Vaginal discharge [Not Recovered/Not Resolved]
